FAERS Safety Report 6844708-7 (Version None)
Quarter: 2010Q2

REPORT INFORMATION
  Report Type: 
  Country: None (occurrence: None)
  Receive Date: 20100629
  Receipt Date: 20100401
  Transmission Date: 20101027
  Serious: No
  Sender: FDA-Public Use
  Company Number: US-WYE-H14474510

PATIENT
  Age: 52 Year
  Sex: Female
  Weight: 58.11 kg

DRUGS (6)
  1. PRISTIQ [Suspect]
     Indication: DEPRESSION
     Dosage: RESTARTED THERAPY ON AN UNKNOWN DATE 50 MG DAILY ORAL; 50 MG 1X PER 1 DAY, ORAL
     Route: 048
     Dates: start: 20091026, end: 20091101
  2. PRISTIQ [Suspect]
     Indication: DEPRESSION
     Dosage: RESTARTED THERAPY ON AN UNKNOWN DATE 50 MG DAILY ORAL; 50 MG 1X PER 1 DAY, ORAL
     Route: 048
     Dates: end: 20100330
  3. SYNTHROID [Concomitant]
  4. SINGULAIR [Concomitant]
  5. NEXIUM [Concomitant]
  6. WELLBUTRIN (DESVENLAFAXINE SUCCINATE MONOHYDRATE) [Concomitant]

REACTIONS (2)
  - DYSKINESIA [None]
  - INTENTIONAL DRUG MISUSE [None]
